FAERS Safety Report 4449192-9 (Version None)
Quarter: 2004Q3

REPORT INFORMATION
  Report Type: 
  Country: None (occurrence: None)
  Receive Date: 20040913
  Receipt Date: 20040826
  Transmission Date: 20050211
  Serious: Yes (Death, Other)
  Sender: FDA-Public Use
  Company Number: USA-2002-0000689

PATIENT
  Age: 31 Year
  Sex: Male
  Weight: 77.1 kg

DRUGS (3)
  1. OXYCONTIN [Suspect]
     Indication: PAIN
     Dosage: MG, ORAL
     Route: 048
  2. TETRAHYDROCANNABINOL (TETRAHYDROCANNABINOL) [Suspect]
  3. COCAINE (COCAINE) UNKNOWN [Suspect]

REACTIONS (14)
  - ACUTE PULMONARY OEDEMA [None]
  - BRAIN OEDEMA [None]
  - CARDIOMEGALY [None]
  - CORONARY ARTERY ATHEROSCLEROSIS [None]
  - DRUG ABUSER [None]
  - DRUG DEPENDENCE [None]
  - HEPATOSPLENOMEGALY [None]
  - INJECTION SITE HAEMORRHAGE [None]
  - MULTIPLE DRUG OVERDOSE [None]
  - PULMONARY CONGESTION [None]
  - RESPIRATORY ARREST [None]
  - RESPIRATORY FAILURE [None]
  - SELF-MEDICATION [None]
  - SPLENIC CYST [None]
